FAERS Safety Report 5479228-8 (Version None)
Quarter: 2007Q4

REPORT INFORMATION
  Report Type: 
  Country: None (occurrence: None)
  Receive Date: 20071008
  Receipt Date: 20070928
  Transmission Date: 20080405
  Serious: Yes (Hospitalization)
  Sender: FDA-Public Use
  Company Number: FR-JNJFOC-20070902343

PATIENT
  Age: 14 Year
  Sex: Female

DRUGS (6)
  1. OFLOCET [Suspect]
     Indication: INTENTIONAL OVERDOSE
     Route: 048
  2. TERCIAN [Suspect]
     Indication: INTENTIONAL OVERDOSE
     Route: 048
  3. DEPAMIDE [Suspect]
     Indication: INTENTIONAL OVERDOSE
     Route: 048
  4. URBANYL [Suspect]
     Indication: INTENTIONAL OVERDOSE
     Route: 048
  5. TERICAN [Suspect]
     Indication: DRUG USE FOR UNKNOWN INDICATION
     Route: 048
  6. DEPAMIDE [Suspect]
     Indication: DRUG USE FOR UNKNOWN INDICATION
     Route: 048

REACTIONS (2)
  - INTENTIONAL OVERDOSE [None]
  - SOMNOLENCE [None]
